FAERS Safety Report 6030717-7 (Version None)
Quarter: 2009Q1

REPORT INFORMATION
  Report Type: 
  Country: None (occurrence: None)
  Receive Date: 20090107
  Receipt Date: 20081223
  Transmission Date: 20090719
  Serious: No
  Sender: FDA-Public Use
  Company Number: US-B.I. PHARMACEUTICALS,INC./RIDGEFIELD-2008-BP-19089BP

PATIENT
  Sex: Female

DRUGS (2)
  1. ZANTAC 150 [Suspect]
     Indication: ULCER
     Dosage: 300MG
     Route: 048
     Dates: start: 20081221, end: 20081223
  2. ACIPHEX [Concomitant]

REACTIONS (5)
  - EAR PRURITUS [None]
  - EYE PRURITUS [None]
  - ORAL PRURITUS [None]
  - PRURITUS [None]
  - RASH [None]
